FAERS Safety Report 21805523 (Version 1)
Quarter: 2023Q1

REPORT INFORMATION
  Report Type: Spontaneous
  Country: PT (occurrence: PT)
  Receive Date: 20230102
  Receipt Date: 20230102
  Transmission Date: 20230418
  Serious: Yes (Other)
  Sender: FDA-Public Use
  Company Number: None

PATIENT
  Age: 50 Year
  Sex: Female

DRUGS (2)
  1. LETROZOLE [Suspect]
     Active Substance: LETROZOLE
     Indication: Breast cancer
     Dosage: 1 CP / DAY
     Dates: start: 20220804, end: 20221114
  2. CALCIUM CARBONATE W/CALCIUM LACTATE [Concomitant]

REACTIONS (2)
  - Arthralgia [Recovering/Resolving]
  - Onychomycosis [Recovering/Resolving]

NARRATIVE: CASE EVENT DATE: 20220811
